FAERS Safety Report 4838896-1 (Version None)
Quarter: 2005Q4

REPORT INFORMATION
  Report Type: 
  Country: None (occurrence: None)
  Receive Date: 20051129
  Receipt Date: 20051116
  Transmission Date: 20060501
  Serious: Yes (Hospitalization)
  Sender: FDA-Public Use
  Company Number: PHHO2005MX18273

PATIENT
  Age: 40 Year
  Sex: Female

DRUGS (1)
  1. TRILEPTAL [Suspect]
     Indication: EPILEPSY
     Dosage: 600MG/DAY
     Route: 048
     Dates: start: 20050615

REACTIONS (9)
  - BLOOD PRESSURE INCREASED [None]
  - DEPRESSION [None]
  - DISEASE PROGRESSION [None]
  - DIZZINESS [None]
  - DYSPNOEA [None]
  - EPILEPSY [None]
  - EYE PAIN [None]
  - FATIGUE [None]
  - HEADACHE [None]
